FAERS Safety Report 9507224 (Version 2)
Quarter: 2014Q2

REPORT INFORMATION
  Report Type: Report from Study
  Country: AU (occurrence: AU)
  Receive Date: 20130909
  Receipt Date: 20140424
  Transmission Date: 20141212
  Serious: Yes (Other)
  Sender: FDA-Public Use
  Company Number: PHHY2013AU097409

PATIENT
  Age: 60 Year
  Sex: Female

DRUGS (13)
  1. SIMULECT [Suspect]
     Indication: RENAL TRANSPLANT
     Dosage: UNK UKN, UNK
  2. SIMULECT [Suspect]
     Dosage: UNK UKN, UNK
  3. SIMULECT [Suspect]
     Dosage: UNK UKN, UNK
  4. PREDNISOLONE [Concomitant]
     Indication: IMMUNOSUPPRESSION
     Dosage: UNK UKN, UNK
  5. PREDNISOLONE [Concomitant]
     Dosage: UNK UKN, UNK
  6. PREDNISOLONE [Concomitant]
     Dosage: UNK UKN, UNK
  7. MYCOPHENOLATE MOFETIL [Concomitant]
     Indication: IMMUNOSUPPRESSION
     Dosage: UNK UKN, UNK
  8. MYCOPHENOLATE MOFETIL [Concomitant]
     Dosage: UNK UKN, UNK
  9. MYCOPHENOLATE MOFETIL [Concomitant]
     Dosage: UNK UKN, UNK
  10. TACROLIMUS [Concomitant]
     Indication: IMMUNOSUPPRESSION
     Dosage: 0.05 MG/KG, UNK
  11. TACROLIMUS [Concomitant]
     Dosage: UNK UKN, UNK
  12. TACROLIMUS [Concomitant]
     Dosage: UNK UKN, UNK
  13. GENTAMICIN [Concomitant]
     Dosage: 4 MG/KG, UNK SINGLE DOSE

REACTIONS (14)
  - Nephropathy toxic [Unknown]
  - Adenovirus infection [Unknown]
  - Nephropathy [Unknown]
  - Pollakiuria [Unknown]
  - Malaise [Recovering/Resolving]
  - Dysuria [Recovering/Resolving]
  - Diarrhoea [Not Recovered/Not Resolved]
  - Renal impairment [Unknown]
  - Renal tubular acidosis [Unknown]
  - Kidney transplant rejection [Unknown]
  - Lymphocytic infiltration [Unknown]
  - Tubulointerstitial nephritis [Unknown]
  - Capillaritis [Unknown]
  - Pyrexia [Recovered/Resolved]
